FAERS Safety Report 7138282-8 (Version None)
Quarter: 2010Q4

REPORT INFORMATION
  Report Type: 
  Country: None (occurrence: None)
  Receive Date: 20101202
  Receipt Date: 20101202
  Transmission Date: 20110411
  Serious: Yes (Life-Threatening, Hospitalization)
  Sender: FDA-Public Use
  Company Number: None

PATIENT
  Age: 58 Year
  Sex: Male
  Weight: 85 kg

DRUGS (2)
  1. DALTEPARIN SODIUM [Suspect]
     Indication: ATRIAL FIBRILLATION
     Dosage: 12500 UNITS EVERY DAY SQ
     Route: 058
     Dates: start: 20100702, end: 20100707
  2. WARFARIN SODIUM [Suspect]
     Dosage: 7.5 MG EVERY DAY PO
     Route: 048
     Dates: start: 20100701, end: 20100708

REACTIONS (2)
  - ANAEMIA [None]
  - MUSCLE HAEMORRHAGE [None]
